FAERS Safety Report 7483766-6 (Version None)
Quarter: 2011Q2

REPORT INFORMATION
  Report Type: 
  Country: None (occurrence: None)
  Receive Date: 20110517
  Receipt Date: 20110510
  Transmission Date: 20111010
  Serious: Yes (Other)
  Sender: FDA-Public Use
  Company Number: PHHY2010US85129

PATIENT
  Sex: Female

DRUGS (2)
  1. EXJADE [Suspect]
     Indication: ANAEMIA
     Dosage: 750 MG, QD
     Route: 048
  2. EXJADE [Suspect]
     Indication: IRON OVERLOAD
     Dosage: 1000 MG, QD
     Route: 048

REACTIONS (6)
  - URINARY TRACT INFECTION [None]
  - NYSTAGMUS [None]
  - LIVER DISORDER [None]
  - NEPHROLITHIASIS [None]
  - RENAL FAILURE [None]
  - RENAL DISORDER [None]
